FAERS Safety Report 9372586 (Version 1)
Quarter: 2013Q2

REPORT INFORMATION
  Report Type: Spontaneous
  Country: JP (occurrence: JP)
  Receive Date: 20130627
  Receipt Date: 20130627
  Transmission Date: 20140414
  Serious: Yes (Hospitalization, Other)
  Sender: FDA-Public Use
  Company Number: JP-PFIZER INC-2013189108

PATIENT
  Age: 61 Year
  Sex: Male
  Weight: 61 kg

DRUGS (6)
  1. ADRIACIN [Suspect]
     Route: 065
  2. RITUXIMAB [Suspect]
     Route: 065
  3. CYCLOPHOSPHAMIDE [Suspect]
     Route: 065
  4. VINCRISTINE SULFATE [Suspect]
     Route: 065
  5. PREDNISOLONE [Suspect]
     Route: 065
  6. BENDAMUSTINE HYDROCHLORIDE [Suspect]
     Route: 065

REACTIONS (1)
  - Herpes zoster disseminated [Recovering/Resolving]
